FAERS Safety Report 17955531 (Version 1)
Quarter: 2020Q2

REPORT INFORMATION
  Report Type: Spontaneous
  Country: PT (occurrence: PT)
  Receive Date: 20200629
  Receipt Date: 20200629
  Transmission Date: 20200714
  Serious: Yes (Other)
  Sender: FDA-Public Use
  Company Number: PT-ACCORD-187363

PATIENT
  Age: 48 Year
  Sex: Female

DRUGS (5)
  1. ITAVASTATIN [Concomitant]
     Active Substance: PITAVASTATIN
     Dosage: UNK
  2. QUETIAPINE. [Suspect]
     Active Substance: QUETIAPINE
     Indication: HIV-ASSOCIATED NEUROCOGNITIVE DISORDER
     Dosage: UNK
     Route: 065
  3. PREDNISONE. [Concomitant]
     Active Substance: PREDNISONE
     Indication: PRODUCT USED FOR UNKNOWN INDICATION
     Dosage: 1MGK PER DAY
     Route: 048
  4. OLANZAPINE. [Suspect]
     Active Substance: OLANZAPINE
     Indication: PRODUCT USED FOR UNKNOWN INDICATION
     Dosage: UNK
     Route: 065
  5. AZATHIOPRINE. [Suspect]
     Active Substance: AZATHIOPRINE
     Indication: PRODUCT USED FOR UNKNOWN INDICATION
     Dosage: 100 MG PER DAY
     Route: 065

REACTIONS (9)
  - Dermatitis bullous [Unknown]
  - Pruritus [Unknown]
  - Skin erosion [Unknown]
  - Skin plaque [Unknown]
  - Pemphigoid [Recovered/Resolved]
  - Eosinophilia [Recovered/Resolved]
  - Blister [Unknown]
  - Urticaria [Unknown]
  - Bicytopenia [Unknown]
